FAERS Safety Report 12523678 (Version 1)
Quarter: 2016Q3

REPORT INFORMATION
  Report Type: Spontaneous
  Country: US (occurrence: US)
  Receive Date: 20160704
  Receipt Date: 20160704
  Transmission Date: 20161109
  Serious: Yes (Hospitalization)
  Sender: FDA-Public Use
  Company Number: US-ASTRAZENECA-2016SE70886

PATIENT
  Age: 56 Year
  Sex: Female
  Weight: 72.1 kg

DRUGS (12)
  1. NEXIUM [Suspect]
     Active Substance: ESOMEPRAZOLE MAGNESIUM
     Indication: GASTROOESOPHAGEAL REFLUX DISEASE
     Dosage: 40 MG, DAILY, GENERIC
     Route: 048
     Dates: start: 2016, end: 2016
  2. MAGNESIUM [Concomitant]
     Active Substance: MAGNESIUM
  3. CENTRUM [Concomitant]
     Active Substance: VITAMINS
     Indication: SUPPLEMENTATION THERAPY
     Dosage: DAILY
  4. CLARITIN [Concomitant]
     Active Substance: LORATADINE
     Indication: SEASONAL ALLERGY
     Dosage: 10.0MG AS REQUIRED
  5. NEXIUM [Suspect]
     Active Substance: ESOMEPRAZOLE MAGNESIUM
     Indication: GASTROOESOPHAGEAL REFLUX DISEASE
     Route: 048
  6. NEXIUM [Suspect]
     Active Substance: ESOMEPRAZOLE MAGNESIUM
     Indication: GASTROOESOPHAGEAL REFLUX DISEASE
     Route: 048
     Dates: start: 2016, end: 2016
  7. ALLERGY SHOTS [Concomitant]
     Active Substance: UNSPECIFIED INGREDIENT
     Indication: HYPERSENSITIVITY
     Dosage: MONTHLY
  8. XANAX [Concomitant]
     Active Substance: ALPRAZOLAM
     Indication: SLEEP DISORDER
     Dates: start: 1999
  9. HORMONE THERAPY PILLS [Concomitant]
  10. NEXIUM [Suspect]
     Active Substance: ESOMEPRAZOLE MAGNESIUM
     Indication: GASTROOESOPHAGEAL REFLUX DISEASE
     Route: 048
     Dates: start: 201606
  11. BENADRYL [Concomitant]
     Active Substance: DIPHENHYDRAMINE HYDROCHLORIDE
     Indication: HYPERSENSITIVITY
  12. VITAMIN D3 [Concomitant]
     Active Substance: CHOLECALCIFEROL
     Dosage: 5000,DAILY

REACTIONS (14)
  - Salivary hypersecretion [Unknown]
  - Abdominal pain upper [Unknown]
  - Gastric disorder [Unknown]
  - Nausea [Unknown]
  - Oropharyngeal pain [Unknown]
  - Off label use [Unknown]
  - Chest discomfort [Unknown]
  - Dysgeusia [Unknown]
  - Blood cholesterol increased [Unknown]
  - Diarrhoea [Unknown]
  - Vomiting [Unknown]
  - Pain [Unknown]
  - Fall [Unknown]
  - Contusion [Unknown]

NARRATIVE: CASE EVENT DATE: 2015
